FAERS Safety Report 18667789 (Version 1)
Quarter: 2020Q4

REPORT INFORMATION
  Report Type: Spontaneous
  Country: JP (occurrence: JP)
  Receive Date: 20201228
  Receipt Date: 20201228
  Transmission Date: 20210114
  Serious: Yes (Other)
  Sender: FDA-Public Use
  Company Number: JP-TEVA-2020-JP-007644J

PATIENT
  Age: 78 Year
  Sex: Female

DRUGS (1)
  1. FENOFIBRATE TABLET 80MG  ^TAKEDA TEVA^ [Suspect]
     Active Substance: FENOFIBRATE
     Indication: PRODUCT USED FOR UNKNOWN INDICATION
     Dosage: 80 MILLIGRAM DAILY;
     Route: 048

REACTIONS (1)
  - Amyotrophy [Unknown]
